FAERS Safety Report 20941476 (Version 1)
Quarter: 2022Q2

REPORT INFORMATION
  Report Type: Spontaneous
  Country: US (occurrence: US)
  Receive Date: 20220610
  Receipt Date: 20220610
  Transmission Date: 20220721
  Serious: Yes (Other)
  Sender: FDA-Public Use
  Company Number: US-SUN PHARMACEUTICAL INDUSTRIES LTD-2022R1-340424

PATIENT
  Age: 73 Year
  Sex: Male

DRUGS (5)
  1. TIMOLOL [Suspect]
     Active Substance: TIMOLOL
     Indication: Intraocular pressure test abnormal
     Dosage: 1 DROP, TID (LEFT EYE)
     Route: 047
  2. TIMOLOL [Suspect]
     Active Substance: TIMOLOL
     Dosage: 1 DROP, QD(RIGHT EYE)
     Route: 047
  3. ATENOLOL [Suspect]
     Active Substance: ATENOLOL
     Indication: Hypertension
     Route: 048
  4. FLOMAX [Suspect]
     Active Substance: TAMSULOSIN HYDROCHLORIDE
     Indication: Benign prostatic hyperplasia
     Route: 048
  5. AVAPRO [Suspect]
     Active Substance: IRBESARTAN
     Indication: Benign prostatic hyperplasia
     Route: 048

REACTIONS (1)
  - Myopia [Unknown]
